FAERS Safety Report 16164757 (Version 2)
Quarter: 2019Q3

REPORT INFORMATION
  Report Type: Spontaneous
  Country: TW (occurrence: TW)
  Receive Date: 20190405
  Receipt Date: 20190920
  Transmission Date: 20191004
  Serious: Yes (Death, Other)
  Sender: FDA-Public Use
  Company Number: TW-ASTRAZENECA-2019SE50164

PATIENT
  Age: 65 Year
  Sex: Male

DRUGS (1)
  1. IMFINZI [Suspect]
     Active Substance: DURVALUMAB
     Indication: LUNG SQUAMOUS CELL CARCINOMA STAGE III
     Route: 042
     Dates: start: 20180416, end: 20180724

REACTIONS (4)
  - Death [Fatal]
  - Tumour pseudoprogression [Unknown]
  - Abscess [Unknown]
  - Vomiting [Unknown]

NARRATIVE: CASE EVENT DATE: 20180904
